FAERS Safety Report 16256388 (Version 1)
Quarter: 2019Q2

REPORT INFORMATION
  Report Type: Spontaneous
  Country: US (occurrence: US)
  Receive Date: 20190430
  Receipt Date: 20190430
  Transmission Date: 20190711
  Serious: No
  Sender: FDA-Public Use
  Company Number: US-ABBVIE-19S-163-2712639-00

PATIENT
  Age: 75 Year
  Sex: Female
  Weight: 56.75 kg

DRUGS (1)
  1. CREON [Suspect]
     Active Substance: PANCRELIPASE AMYLASE\PANCRELIPASE LIPASE\PANCRELIPASE PROTEASE
     Indication: PANCREATIC FAILURE
     Dosage: 2 CAPSULES PER MEAL
     Route: 048
     Dates: start: 201902

REACTIONS (2)
  - Unevaluable event [Recovering/Resolving]
  - Diarrhoea [Recovering/Resolving]
